FAERS Safety Report 12103938 (Version 2)
Quarter: 2016Q1

REPORT INFORMATION
  Report Type: Report from Study
  Country: ES (occurrence: ES)
  Receive Date: 20160223
  Receipt Date: 20160224
  Transmission Date: 20160526
  Serious: Yes (Death, Hospitalization, Other)
  Sender: FDA-Public Use
  Company Number: ES-BRISTOL-MYERS SQUIBB COMPANY-BMS-2015-021942

PATIENT
  Age: 58 Year
  Sex: Male
  Weight: 87.6 kg

DRUGS (6)
  1. NIVOLUMAB [Suspect]
     Active Substance: NIVOLUMAB
     Indication: MALIGNANT MELANOMA
     Dosage: 263 MG, TOTAL
     Route: 042
     Dates: start: 20150116, end: 20150116
  2. NIVOLUMAB [Suspect]
     Active Substance: NIVOLUMAB
     Dosage: 263 MG, TOTAL
     Route: 042
     Dates: start: 20150313, end: 20150313
  3. NIVOLUMAB [Suspect]
     Active Substance: NIVOLUMAB
     Dosage: 263 MG, TOTAL
     Route: 042
     Dates: start: 20150213, end: 20150213
  4. NIVOLUMAB [Suspect]
     Active Substance: NIVOLUMAB
     Dosage: 263 MG, TOTAL
     Route: 042
     Dates: start: 20150227, end: 20150227
  5. NIVOLUMAB [Suspect]
     Active Substance: NIVOLUMAB
     Dosage: 263 MG, TOTAL
     Route: 042
     Dates: start: 20150130, end: 20150130
  6. NIVOLUMAB [Suspect]
     Active Substance: NIVOLUMAB
     Dosage: 263 MG, TOTAL
     Route: 042
     Dates: start: 20150327, end: 20150327

REACTIONS (2)
  - Malignant neoplasm progression [Fatal]
  - Hepatic encephalopathy [Fatal]

NARRATIVE: CASE EVENT DATE: 20150330
